FAERS Safety Report 24002848 (Version 1)
Quarter: 2024Q2

REPORT INFORMATION
  Report Type: Spontaneous
  Country: TR (occurrence: TR)
  Receive Date: 20240624
  Receipt Date: 20240624
  Transmission Date: 20240717
  Serious: Yes (Hospitalization)
  Sender: FDA-Public Use
  Company Number: TR-NOVOPROD-1238624

PATIENT
  Age: 904 Month
  Sex: Male
  Weight: 80 kg

DRUGS (6)
  1. VIDAPTIN MET [Concomitant]
     Indication: Product used for unknown indication
     Dosage: 1000 MG X 2 TABLETS (DM),BID
  2. HYDROCHLOROTHIAZIDE\RAMIPRIL [Concomitant]
     Active Substance: HYDROCHLOROTHIAZIDE\RAMIPRIL
     Indication: Product used for unknown indication
     Dosage: 12.5 MG X 1 TABLET (HT) QD
  3. RYZODEG 70/30 [Suspect]
     Active Substance: INSULIN ASPART\INSULIN DEGLUDEC
     Indication: Product used for unknown indication
     Dosage: 40 IU, BID(FOR MORE THAN 5-6 YEARS)
  4. PLAVIX [Concomitant]
     Active Substance: CLOPIDOGREL BISULFATE
     Indication: Product used for unknown indication
     Dosage: UNK(BLOOD THINNER)
  5. ASPIRIN [Concomitant]
     Active Substance: ASPIRIN
     Indication: Product used for unknown indication
     Dosage: 100 MG X 1 TB (HT)
  6. ATENOLOL [Concomitant]
     Active Substance: ATENOLOL
     Indication: Product used for unknown indication
     Dosage: 50 MG, QD( 1 TABLET EVERY DAY)

REACTIONS (1)
  - Cerebral thrombosis [Unknown]
